FAERS Safety Report 10029312 (Version 3)
Quarter: 2014Q2

REPORT INFORMATION
  Report Type: Report from Study
  Country: DE (occurrence: DE)
  Receive Date: 20140321
  Receipt Date: 20140425
  Transmission Date: 20141212
  Serious: Yes (Hospitalization)
  Sender: FDA-Public Use
  Company Number: PHHY2014DE022186

PATIENT
  Sex: Male
  Weight: 80 kg

DRUGS (3)
  1. FTY 720 [Suspect]
     Indication: MULTIPLE SCLEROSIS
     Dosage: 0.5 MG, QD
     Route: 048
     Dates: start: 20120514
  2. FAMPYRA [Concomitant]
     Dosage: 20 MG, QD
     Dates: start: 20120613
  3. BACLOFEN [Concomitant]
     Dosage: 20 MG, QD
     Dates: start: 20131118

REACTIONS (3)
  - Uhthoff^s phenomenon [Unknown]
  - Malaise [Recovered/Resolved]
  - Pyrexia [Recovered/Resolved]
